FAERS Safety Report 9882606 (Version 5)
Quarter: 2014Q2

REPORT INFORMATION
  Report Type: Report from Study
  Country: US (occurrence: US)
  Receive Date: 20140207
  Receipt Date: 20140411
  Transmission Date: 20141212
  Serious: Yes (Hospitalization, Other)
  Sender: FDA-Public Use
  Company Number: US-BRISTOL-MYERS SQUIBB COMPANY-20086179

PATIENT
  Age: 69 Year
  Sex: Female
  Weight: 71 kg

DRUGS (8)
  1. NIVOLUMAB [Suspect]
     Indication: METASTATIC MALIGNANT MELANOMA
     Route: 042
     Dates: start: 20131203, end: 20140116
  2. IPILIMUMAB [Suspect]
     Indication: METASTATIC MALIGNANT MELANOMA
     Route: 042
     Dates: start: 20131203, end: 20140116
  3. BLINDED: PLACEBO [Suspect]
     Indication: METASTATIC MALIGNANT MELANOMA
     Route: 042
     Dates: start: 20131203, end: 20140116
  4. ALBUTEROL [Concomitant]
     Dates: start: 20130206
  5. CARDIZEM CD [Concomitant]
     Route: 048
     Dates: start: 20130206
  6. HYDRODIURIL [Concomitant]
     Route: 048
     Dates: start: 20130206
  7. BENADRYL [Concomitant]
     Route: 061
  8. PROVENTIL INHALER [Concomitant]
     Dosage: DOSAGE:2PUFFS INTO THE LUNGS EVERY 4HRS AS NEEDED
     Route: 055

REACTIONS (4)
  - Diabetic ketoacidosis [Recovered/Resolved with Sequelae]
  - Pancreatitis [Recovered/Resolved]
  - Transaminases increased [Not Recovered/Not Resolved]
  - Pneumonia [Recovered/Resolved]
